FAERS Safety Report 18199471 (Version 5)
Quarter: 2021Q1

REPORT INFORMATION
  Report Type: Report from Study
  Country: US (occurrence: US)
  Receive Date: 20200826
  Receipt Date: 20210217
  Transmission Date: 20210419
  Serious: Yes (Other)
  Sender: FDA-Public Use
  Company Number: US-IPSEN BIOPHARMACEUTICALS, INC.-2020-01158

PATIENT
  Age: 3 Year
  Sex: Male
  Weight: 18.1 kg

DRUGS (17)
  1. BACLOFEN. [Concomitant]
     Active Substance: BACLOFEN
     Dates: start: 20171011, end: 20180731
  2. BACLOFEN. [Concomitant]
     Active Substance: BACLOFEN
     Dates: start: 20180921
  3. DIAZEPAM. [Concomitant]
     Active Substance: DIAZEPAM
     Route: 048
     Dates: start: 20200429
  4. CEFDINIR. [Concomitant]
     Active Substance: CEFDINIR
     Indication: OTITIS MEDIA
     Dates: start: 20190418, end: 20190428
  5. AMOXICILLIN. [Concomitant]
     Active Substance: AMOXICILLIN
     Indication: TONSILLITIS
     Dates: start: 20190125, end: 20190205
  6. TIZANIDINE. [Concomitant]
     Active Substance: TIZANIDINE
     Dosage: QD
     Dates: start: 20180925, end: 20190721
  7. CLOBAZAM. [Concomitant]
     Active Substance: CLOBAZAM
     Dates: start: 20201007
  8. ANECTINE INJECTION [Concomitant]
     Indication: MEDICAL PROCEDURE
     Route: 042
     Dates: start: 20190213, end: 20190213
  9. DYSPORT [Suspect]
     Active Substance: ABOBOTULINUMTOXINA
     Indication: MUSCLE SPASTICITY
     Dosage: 500 INTERNATIONAL UNITS
     Route: 030
     Dates: start: 20190717, end: 20190717
  10. RANITIDINE. [Concomitant]
     Active Substance: RANITIDINE
     Indication: GASTROOESOPHAGEAL REFLUX DISEASE
     Dates: start: 20190731
  11. CLOBAZAM. [Concomitant]
     Active Substance: CLOBAZAM
     Indication: SEIZURE
     Dates: start: 20191230, end: 20201007
  12. BACLOFEN. [Concomitant]
     Active Substance: BACLOFEN
     Dates: start: 20180801, end: 20180920
  13. VALPROIC ACID. [Concomitant]
     Active Substance: VALPROIC ACID
     Indication: SEIZURE
     Dates: start: 20200730
  14. LMX 44 [Concomitant]
     Indication: MEDICAL PROCEDURE
     Dosage: ONCE
     Route: 061
     Dates: start: 20190717, end: 20190717
  15. AMOXICILLIN POTASSIUM CLAVULANATE [Concomitant]
     Indication: UPPER RESPIRATORY TRACT INFECTION
     Dates: start: 20190311, end: 20190321
  16. DIAZEPAM. [Concomitant]
     Active Substance: DIAZEPAM
     Indication: SEIZURE
     Dates: start: 20190822
  17. TIZANIDINE. [Concomitant]
     Active Substance: TIZANIDINE
     Dates: start: 20190722, end: 20190820

REACTIONS (17)
  - Conjunctivitis [Recovered/Resolved]
  - Nasal congestion [Recovered/Resolved]
  - Upper respiratory tract infection [Recovered/Resolved]
  - Constipation [Recovered/Resolved]
  - Viral infection [Recovered/Resolved]
  - Tonsillitis [Recovered/Resolved]
  - Otitis media acute [Recovered/Resolved]
  - Otitis media acute [Recovered/Resolved]
  - Joint dislocation [Recovered/Resolved]
  - Dysphagia [Recovered/Resolved]
  - Hordeolum [Recovered/Resolved]
  - Skin irritation [Recovered/Resolved]
  - Upper respiratory tract infection [Recovered/Resolved]
  - Developmental hip dysplasia [Recovered/Resolved]
  - Otitis media acute [Recovered/Resolved]
  - Pharyngitis [Recovered/Resolved]
  - Urinary tract infection [Recovered/Resolved]

NARRATIVE: CASE EVENT DATE: 20180719
